FAERS Safety Report 12161176 (Version 2)
Quarter: 2016Q4

REPORT INFORMATION
  Report Type: Report from Study
  Country: US (occurrence: US)
  Receive Date: 20160308
  Receipt Date: 20161010
  Transmission Date: 20170207
  Serious: Yes (Death, Hospitalization)
  Sender: FDA-Public Use
  Company Number: US-ACTELION-A-NJ2015-125793

PATIENT
  Age: 72 Year
  Sex: Female

DRUGS (5)
  1. SILDENAFIL. [Concomitant]
     Active Substance: SILDENAFIL
  2. SEROQUEL [Concomitant]
     Active Substance: QUETIAPINE FUMARATE
  3. OPSUMIT [Suspect]
     Active Substance: MACITENTAN
     Indication: PULMONARY ARTERIAL HYPERTENSION
     Dosage: 10 MG, QD
     Route: 048
     Dates: start: 20150428, end: 20160924
  4. ZOLOFT [Concomitant]
     Active Substance: SERTRALINE HYDROCHLORIDE
  5. TREPROSTINIL DIOLAMIN [Concomitant]
     Active Substance: TREPROSTINIL DIOLAMINE

REACTIONS (14)
  - Cardiomegaly [Unknown]
  - Weight increased [Recovering/Resolving]
  - Headache [Unknown]
  - Death [Fatal]
  - Insomnia [Unknown]
  - Pulmonary thrombosis [Unknown]
  - Malaise [Unknown]
  - Fluid retention [Recovering/Resolving]
  - Abnormal behaviour [Unknown]
  - Oxygen saturation decreased [Unknown]
  - Therapeutic response decreased [Unknown]
  - Dyspnoea [Unknown]
  - Chest pain [Unknown]
  - Pain in jaw [Unknown]

NARRATIVE: CASE EVENT DATE: 201508
